FAERS Safety Report 4597527-9 (Version None)
Quarter: 2005Q1

REPORT INFORMATION
  Report Type: 
  Country: None (occurrence: None)
  Receive Date: 20050303
  Receipt Date: 20050208
  Transmission Date: 20050727
  Serious: Yes (Disabling)
  Sender: FDA-Public Use
  Company Number: ZA-MERCK-0502ZAF00010

PATIENT
  Sex: Female
  Weight: 64 kg

DRUGS (2)
  1. FOSAMAX [Suspect]
     Indication: OSTEOPOROSIS
     Route: 048
     Dates: start: 20010509, end: 20030415
  2. OMEPRAZOLE MAGNESIUM [Concomitant]
     Indication: BARRETT'S OESOPHAGUS
     Route: 065
     Dates: start: 20030601

REACTIONS (5)
  - ABDOMINAL PAIN [None]
  - BACK PAIN [None]
  - BARRETT'S OESOPHAGUS [None]
  - CHEST PAIN [None]
  - CHOLELITHIASIS [None]
